FAERS Safety Report 5862181-2 (Version None)
Quarter: 2008Q3

REPORT INFORMATION
  Report Type: 
  Country: None (occurrence: None)
  Receive Date: 20080828
  Receipt Date: 20080620
  Transmission Date: 20090109
  Serious: No
  Sender: FDA-Public Use
  Company Number: A0734174A

PATIENT
  Sex: Female

DRUGS (3)
  1. ZOVIRAX [Suspect]
     Indication: HERPES ZOSTER
     Dosage: 850MG FIVE TIMES PER DAY
     Route: 048
     Dates: start: 20080618
  2. PAROXETINE HCL [Concomitant]
  3. VITAMIN AND MINERAL PRENATAL SUPPLEMENT W/ FOLIC ACID CAP [Concomitant]

REACTIONS (2)
  - DRUG EXPOSURE DURING PREGNANCY [None]
  - FOETAL DISORDER [None]
